FAERS Safety Report 17687787 (Version 1)
Quarter: 2020Q2

REPORT INFORMATION
  Report Type: Spontaneous
  Country: US (occurrence: US)
  Receive Date: 20200421
  Receipt Date: 20200421
  Transmission Date: 20200714
  Serious: Yes (Hospitalization)
  Sender: FDA-Public Use
  Company Number: NVSC2020US103350

PATIENT
  Age: 55 Year
  Sex: Male

DRUGS (2)
  1. AMANTADINE. [Suspect]
     Active Substance: AMANTADINE HYDROCHLORIDE
     Indication: PARKINSON^S DISEASE
     Dosage: 300 MG, QD
     Route: 065
  2. AMANTADINE. [Suspect]
     Active Substance: AMANTADINE HYDROCHLORIDE
     Dosage: 400 MG, QD
     Route: 065

REACTIONS (9)
  - Delusion [Unknown]
  - Encephalopathy [Unknown]
  - Gait disturbance [Unknown]
  - Toxicity to various agents [Unknown]
  - Fall [Unknown]
  - Memory impairment [Unknown]
  - Confusional state [Unknown]
  - Myoclonus [Unknown]
  - Hallucination [Unknown]
